FAERS Safety Report 7332704-5 (Version None)
Quarter: 2011Q1

REPORT INFORMATION
  Report Type: 
  Country: None (occurrence: None)
  Receive Date: 20110304
  Receipt Date: 20110302
  Transmission Date: 20110831
  Serious: Yes (Hospitalization)
  Sender: FDA-Public Use
  Company Number: VE-ABBOTT-10P-178-0641925-00

PATIENT
  Sex: Male
  Weight: 78 kg

DRUGS (1)
  1. HUMIRA [Suspect]
     Indication: PSORIATIC ARTHROPATHY
     Route: 058
     Dates: start: 20090717, end: 20100801

REACTIONS (4)
  - WEIGHT DECREASED [None]
  - ANAEMIA [None]
  - NASOPHARYNGITIS [None]
  - PYREXIA [None]
